FAERS Safety Report 4897010-7 (Version None)
Quarter: 2006Q1

REPORT INFORMATION
  Report Type: 
  Country: None (occurrence: None)
  Receive Date: 20060127
  Receipt Date: 20060113
  Transmission Date: 20060701
  Serious: No
  Sender: FDA-Public Use
  Company Number: FR200601002726

PATIENT
  Age: 63 Year
  Sex: Male

DRUGS (1)
  1. ZYPREXA [Suspect]
     Indication: PSYCHOTIC DISORDER
     Dosage: 20 MG, DAILY (1/D),ORAL
     Route: 048
     Dates: start: 20000101, end: 20051201

REACTIONS (1)
  - PLATELET COUNT DECREASED [None]
